FAERS Safety Report 23151795 (Version 1)
Quarter: 2023Q4

REPORT INFORMATION
  Report Type: Spontaneous
  Country: IN (occurrence: IN)
  Receive Date: 20231107
  Receipt Date: 20231107
  Transmission Date: 20240110
  Serious: Yes (Hospitalization, Other)
  Sender: FDA-Public Use
  Company Number: IN-MACLEODS PHARMACEUTICALS US LTD-MAC2023044140

PATIENT

DRUGS (7)
  1. PYRAZINAMIDE [Suspect]
     Active Substance: PYRAZINAMIDE
     Indication: Pulmonary tuberculosis
     Dosage: 1 DOSAGE FORM, QD (IN THE MORNING 30 MIN BEFORE FOOD OR 2 HR AFTER THE FOOD)
     Route: 065
  2. ISONIAZID [Suspect]
     Active Substance: ISONIAZID
     Indication: Pulmonary tuberculosis
     Dosage: 1 DOSAGE FORM, QD (IN THE MORNING 30 MIN BEFORE FOOD OR 2 HR AFTER THE FOOD)
     Route: 065
  3. ETHAMBUTOL HYDROCHLORIDE [Suspect]
     Active Substance: ETHAMBUTOL HYDROCHLORIDE
     Indication: Pulmonary tuberculosis
     Dosage: 1 DOSAGE FORM, QD (IN THE MORNING 30 MIN BEFORE FOOD OR 2 HR AFTER THE FOOD)
     Route: 065
  4. RIFAMPIN [Suspect]
     Active Substance: RIFAMPIN
     Indication: Pulmonary tuberculosis
     Dosage: 1 DOSAGE FORM, QD (TABLET IN THE MORNING 30 MIN BEFORE FOOD OR 2 HR AFTER THE FOOD)
     Route: 065
  5. DEXAMETHASONE [Suspect]
     Active Substance: DEXAMETHASONE
     Indication: Product used for unknown indication
     Dosage: 2 MILLIGRAM, BID
     Route: 065
  6. TESTOSTERONE [Suspect]
     Active Substance: TESTOSTERONE
     Indication: Muscle building therapy
     Dosage: UNK
     Route: 065
  7. METFORMIN [Concomitant]
     Active Substance: METFORMIN HYDROCHLORIDE
     Indication: Diabetes mellitus
     Dosage: 500 MILLIGRAM, BID
     Route: 065

REACTIONS (3)
  - Drug-induced liver injury [Recovering/Resolving]
  - Pseudo Cushing^s syndrome [Recovering/Resolving]
  - Intentional product misuse [Unknown]
